FAERS Safety Report 6609033-8 (Version None)
Quarter: 2010Q1

REPORT INFORMATION
  Report Type: 
  Country: None (occurrence: None)
  Receive Date: 20100301
  Receipt Date: 20100218
  Transmission Date: 20100710
  Serious: Yes (Hospitalization, Other)
  Sender: FDA-Public Use
  Company Number: DE-ELI_LILLY_AND_COMPANY-DE201002004929

PATIENT
  Age: 27 Year
  Sex: Female

DRUGS (12)
  1. ZYPREXA [Suspect]
     Indication: BORDERLINE PERSONALITY DISORDER
     Dosage: 20 MG, UNK
     Route: 048
     Dates: start: 20080101
  2. TORSEMIDE [Concomitant]
  3. VALSARTAN [Concomitant]
  4. METOPROLOL TARTRATE [Concomitant]
  5. L-THYROXIN [Concomitant]
  6. TIOTROPIUM [Concomitant]
  7. LOPERAMIDE [Concomitant]
  8. CHLORMADINON [Concomitant]
  9. ETHINYL ESTRADIOL [Concomitant]
  10. OMEPRAZOL [Concomitant]
  11. TRIMIPRAMINE [Concomitant]
  12. LEVOMEPROMAZINE [Concomitant]

REACTIONS (2)
  - OFF LABEL USE [None]
  - PANCREATITIS ACUTE [None]
